FAERS Safety Report 16385229 (Version 1)
Quarter: 2019Q2

REPORT INFORMATION
  Report Type: Spontaneous
  Country: US (occurrence: US)
  Receive Date: 20190603
  Receipt Date: 20190603
  Transmission Date: 20190711
  Serious: Yes (Hospitalization, Other)
  Sender: FDA-Public Use
  Company Number: US-BAYER-2019-106879

PATIENT
  Age: 92 Year
  Sex: Male

DRUGS (2)
  1. SULODEXIDE [Concomitant]
     Active Substance: SULODEXIDE
     Dosage: 35 DF, ONCE
  2. PARACETAMOL [Suspect]
     Active Substance: ACETAMINOPHEN
     Dosage: 24 DF, ONCE

REACTIONS (2)
  - Hyponatraemia [None]
  - Intentional overdose [None]
